FAERS Safety Report 7127395-2 (Version None)
Quarter: 2010Q4

REPORT INFORMATION
  Report Type: 
  Country: None (occurrence: None)
  Receive Date: 20101129
  Receipt Date: 20090914
  Transmission Date: 20110411
  Serious: No
  Sender: FDA-Public Use
  Company Number: US-PFIZER INC-2009268582

PATIENT
  Sex: Female
  Weight: 49.9 kg

DRUGS (4)
  1. REVATIO [Suspect]
     Indication: PULMONARY HYPERTENSION
     Dosage: UNK
  2. COZAAR [Concomitant]
  3. OMEPRAZOLE [Concomitant]
  4. CYCLOSPORINE [Concomitant]
     Route: 047

REACTIONS (4)
  - ALOPECIA [None]
  - INSOMNIA [None]
  - PRURITUS [None]
  - STRESS [None]
